FAERS Safety Report 7937664-1 (Version None)
Quarter: 2011Q4

REPORT INFORMATION
  Report Type: 
  Country: None (occurrence: None)
  Receive Date: 20111123
  Receipt Date: 20111116
  Transmission Date: 20120403
  Serious: Yes (Hospitalization, Disabling, Other)
  Sender: FDA-Public Use
  Company Number: PHEH2011US009728

PATIENT
  Sex: Male
  Weight: 156 kg

DRUGS (3)
  1. LEUPRON [Concomitant]
     Dosage: 22.5 MG, UNK
  2. ZOMETA [Suspect]
     Indication: PROSTATE CANCER
     Dosage: 4 MG, EVERY 4 WEEKS
     Route: 042
     Dates: start: 20090101, end: 20110901
  3. PROVENAP [Concomitant]

REACTIONS (1)
  - PATHOLOGICAL FRACTURE [None]
